FAERS Safety Report 4731545-2 (Version None)
Quarter: 2005Q3

REPORT INFORMATION
  Report Type: 
  Country: None (occurrence: None)
  Receive Date: 20050721
  Receipt Date: 20050518
  Transmission Date: 20060218
  Serious: Yes (Hospitalization)
  Sender: FDA-Public Use
  Company Number: 2005075365

PATIENT
  Age: 28 Year
  Sex: Female

DRUGS (3)
  1. RELPAX [Suspect]
     Indication: MIGRAINE
     Dosage: 80 MG (1 IN 1 D), ORAL
     Route: 048
  2. ALBUTEROL [Concomitant]
  3. TYLENOL COLD (CHLORPHENAMINE MALEATE, DEXTROMETHORPHAN HYDROBROMIDE, P [Concomitant]

REACTIONS (5)
  - ANXIETY [None]
  - CHEST DISCOMFORT [None]
  - DYSPNOEA [None]
  - NAUSEA [None]
  - PALPITATIONS [None]
